FAERS Safety Report 7054029-8 (Version None)
Quarter: 2010Q4

REPORT INFORMATION
  Report Type: 
  Country: None (occurrence: None)
  Receive Date: 20101020
  Receipt Date: 20101018
  Transmission Date: 20110411
  Serious: Yes (Death)
  Sender: FDA-Public Use
  Company Number: FR-WYE-H14010610

PATIENT
  Sex: Male
  Weight: 59 kg

DRUGS (2)
  1. TEMSIROLIMUS [Suspect]
     Indication: RENAL CELL CARCINOMA
     Route: 042
     Dates: start: 20081218, end: 20100305
  2. BEVACIZUMAB [Suspect]
     Indication: RENAL CELL CARCINOMA
     Dosage: EVERY OTHER WEEK, DOSE NOT PROVIDED
     Dates: start: 20081218, end: 20100305

REACTIONS (1)
  - SUDDEN DEATH [None]
